FAERS Safety Report 8875189 (Version 1)
Quarter: 2012Q4

REPORT INFORMATION
  Report Type: 
  Country: US (occurrence: US)
  Receive Date: 20121026
  Receipt Date: 20121026
  Transmission Date: 20130627
  Serious: No
  Sender: FDA-Public Use
  Company Number: US-AMGEN-USASP2012044866

PATIENT
  Age: 46 Year
  Sex: Female
  Weight: 108.84 kg

DRUGS (8)
  1. ENBREL [Suspect]
     Indication: PRODUCT USED FOR UNKNOWN INDICATION
     Dosage: 50 mg, UNK
  2. SYNTHROID [Concomitant]
     Dosage: 200 mug, UNK
  3. TOPROL [Concomitant]
     Dosage: 50 mg, UNK
  4. SINGULAIR [Concomitant]
     Dosage: 10 mg, UNK
  5. METFORMIN [Concomitant]
     Dosage: 500 mg, UNK
  6. ALDACTONE                          /00006201/ [Concomitant]
     Dosage: 25 mg, UNK
  7. MOBIC [Concomitant]
     Dosage: 15 mg, UNK
  8. PROZAC [Concomitant]
     Dosage: 40 mg, UNK

REACTIONS (3)
  - Injection site reaction [Unknown]
  - Injection site swelling [Unknown]
  - Injection site warmth [Unknown]
